FAERS Safety Report 8041110-X (Version None)
Quarter: 2012Q1

REPORT INFORMATION
  Report Type: 
  Country: None (occurrence: None)
  Receive Date: 20120109
  Receipt Date: 20120104
  Transmission Date: 20120608
  Serious: Yes (Other)
  Sender: FDA-Public Use
  Company Number: 2012SP000425

PATIENT
  Age: 42 Year
  Sex: Female

DRUGS (2)
  1. REBETOL [Suspect]
     Indication: HEPATITIS C
     Dosage: 800 MG;QD;PO
     Route: 048
     Dates: start: 20110401, end: 20110512
  2. VIRAFERONPEG [Suspect]
     Indication: HEPATITIS C
     Dosage: 85 MCG;QW;SC
     Route: 058
     Dates: start: 20110401, end: 20110524

REACTIONS (4)
  - INJECTION SITE DISCOLOURATION [None]
  - HYPERKERATOSIS [None]
  - INJECTION SITE ECZEMA [None]
  - INJECTION SITE HAEMATOMA [None]
